FAERS Safety Report 23839176 (Version 1)
Quarter: 2024Q2

REPORT INFORMATION
  Report Type: Spontaneous
  Country: NO (occurrence: NO)
  Receive Date: 20240509
  Receipt Date: 20240509
  Transmission Date: 20240716
  Serious: Yes (Hospitalization, Disabling, Other)
  Sender: FDA-Public Use
  Company Number: None

PATIENT
  Age: 58 Year
  Sex: Male
  Weight: 115 kg

DRUGS (2)
  1. DOCETAXEL [Suspect]
     Active Substance: DOCETAXEL\DOCETAXEL ANHYDROUS
     Dosage: UNK
  2. GOSERELIN [Suspect]
     Active Substance: GOSERELIN
     Indication: Prostate cancer
     Dosage: UNK, Q3M; 1 TIME PER 3 MONTHS. LAST TIME FEBRUARY. PATIENT HAVE DISCONTINUED THE DRUG
     Route: 058
     Dates: start: 202108, end: 20230201

REACTIONS (9)
  - Osteonecrosis [Unknown]
  - Osteoporosis [Unknown]
  - Muscle atrophy [Unknown]
  - Neuropathy peripheral [Unknown]
  - Muscle disorder [Not Recovered/Not Resolved]
  - Musculoskeletal discomfort [Not Recovered/Not Resolved]
  - Hot flush [Unknown]
  - Muscular weakness [Unknown]
  - Pain [Not Recovered/Not Resolved]

NARRATIVE: CASE EVENT DATE: 20220101
